FAERS Safety Report 18684129 (Version 1)
Quarter: 2020Q4

REPORT INFORMATION
  Report Type: Spontaneous
  Country: US (occurrence: US)
  Receive Date: 20201230
  Receipt Date: 20201230
  Transmission Date: 20210114
  Serious: Yes (Hospitalization, Other)
  Sender: FDA-Public Use
  Company Number: US-INDIVIOR US-INDV-127706-2020

PATIENT
  Sex: Male

DRUGS (45)
  1. BUPRENORPHINE/NALOXONE 2 MG FILM [Suspect]
     Active Substance: BUPRENORPHINE\NALOXONE
     Dosage: 1.25 MILLIGRAM, QD (DAY 11)
     Route: 064
  2. OXYCODONE [Suspect]
     Active Substance: OXYCODONE
     Indication: CANCER PAIN
     Dosage: 5 MILLIGRAM, PRN (DAY 1)
     Route: 064
  3. MORPHINE INJECTION [Suspect]
     Active Substance: MORPHINE
     Dosage: 9.75 MILLIGRAM, QD (DAY 11)
     Route: 064
  4. MORPHINE [Suspect]
     Active Substance: MORPHINE
     Dosage: 37.5 MILLIGRAM, QD (DAY 2)
     Route: 064
  5. ACETAMINOPHEN. [Suspect]
     Active Substance: ACETAMINOPHEN
     Indication: PRODUCT USED FOR UNKNOWN INDICATION
     Dosage: UNK
     Route: 064
  6. HYDROXYZINE [Suspect]
     Active Substance: HYDROXYZINE HYDROCHLORIDE
     Indication: PRODUCT USED FOR UNKNOWN INDICATION
     Dosage: UNK, AS NECESSARY
     Route: 064
  7. SENNA ALEXANDRINA [Suspect]
     Active Substance: SENNA LEAF
     Indication: CONSTIPATION
     Dosage: UNK
     Route: 064
  8. OXYCODONE [Suspect]
     Active Substance: OXYCODONE
     Dosage: 25 MILLIGRAM, PRN  (DAY 5)
     Route: 064
  9. MORPHINE [Suspect]
     Active Substance: MORPHINE
     Dosage: 110 MILLIGRAM, QD (DAY 8)
     Route: 064
  10. MORPHINE [Suspect]
     Active Substance: MORPHINE
     Dosage: 187.5 MILLIGRAM, QD (DAY 12)
     Route: 064
  11. OXYMETAZOLINE [Suspect]
     Active Substance: OXYMETAZOLINE
     Indication: PRODUCT USED FOR UNKNOWN INDICATION
     Dosage: UNK
     Route: 064
  12. OXYCODONE [Suspect]
     Active Substance: OXYCODONE
     Dosage: 25 MILLIGRAM, PRN  (DAY 2)
     Route: 064
  13. MORPHINE INJECTION [Suspect]
     Active Substance: MORPHINE
     Dosage: 36.22 MILLIGRAM, QD  (DAY 9)
     Route: 064
  14. DIPHENHYDRAMINE. [Suspect]
     Active Substance: DIPHENHYDRAMINE
     Indication: PRODUCT USED FOR UNKNOWN INDICATION
     Dosage: UNK
     Route: 064
  15. ESCITALOPRAM [Suspect]
     Active Substance: ESCITALOPRAM OXALATE
     Indication: PRODUCT USED FOR UNKNOWN INDICATION
     Dosage: UNK
     Route: 064
  16. POLYETHYLENE GLYCOL [MACROGOL] [Suspect]
     Active Substance: POLYETHYLENE GLYCOLS
     Indication: CONSTIPATION
     Dosage: UNK
     Route: 064
  17. HYDROMORPHONE [Suspect]
     Active Substance: HYDROMORPHONE
     Indication: BREAKTHROUGH PAIN
     Dosage: UNK
     Route: 064
  18. OXYCODONE [Suspect]
     Active Substance: OXYCODONE
     Dosage: 25 MILLIGRAM, PRN  (DAY 3)
     Route: 064
  19. MORPHINE [Suspect]
     Active Substance: MORPHINE
     Indication: CANCER PAIN
     Dosage: 7.5 MILLIGRAM, QD (DAY 1)
     Route: 064
  20. MORPHINE [Suspect]
     Active Substance: MORPHINE
     Dosage: 37.5 MILLIGRAM, QD (DAY 3)
     Route: 064
  21. MORPHINE [Suspect]
     Active Substance: MORPHINE
     Dosage: 128.5 MILLIGRAM, QD (DAY 10)
     Route: 064
  22. MORPHINE [Suspect]
     Active Substance: MORPHINE
     Dosage: 123 MILLIGRAM, QD (DAY 11)
     Route: 064
  23. DOXORUBICIN [Suspect]
     Active Substance: DOXORUBICIN
     Indication: CHEMOTHERAPY
     Dosage: UNK
     Route: 064
  24. BUPRENORPHINE/NALOXONE 2 MG FILM [Suspect]
     Active Substance: BUPRENORPHINE\NALOXONE
     Dosage: 2.5 MILLIGRAM, QD (DAY 12)
     Route: 064
  25. BUPRENORPHINE/NALOXONE 2 MG FILM [Suspect]
     Active Substance: BUPRENORPHINE\NALOXONE
     Dosage: 1 MILLIGRAM, QD (SELF TITRATED)
     Route: 064
  26. BUPRENORPHINE/NALOXONE 2 MG FILM [Suspect]
     Active Substance: BUPRENORPHINE\NALOXONE
     Dosage: 1 MILLIGRAM, QD
     Route: 064
  27. OXYCODONE [Suspect]
     Active Substance: OXYCODONE
     Dosage: 50 MILLIGRAM, PRN (DAY 8)
     Route: 064
  28. MORPHINE [Suspect]
     Active Substance: MORPHINE
     Dosage: 37.5 MILLIGRAM, QD (DAY 5)
     Route: 064
  29. MORPHINE [Suspect]
     Active Substance: MORPHINE
     Dosage: 90 MILLIGRAM, QD (DAY 7)
     Route: 064
  30. MORPHINE [Suspect]
     Active Substance: MORPHINE
     Dosage: 108.6 MILLIGRAM, QD (DAY 9)
     Route: 064
  31. MORPHINE [Suspect]
     Active Substance: MORPHINE
     Dosage: 112.5 MILLIGRAM, QD (DAY 13)
     Route: 064
  32. BUPRENORPHINE/NALOXONE 2 MG FILM [Suspect]
     Active Substance: BUPRENORPHINE\NALOXONE
     Dosage: 1.5 MILLIGRAM, QD (DAY 14)
     Route: 064
  33. MORPHINE [Suspect]
     Active Substance: MORPHINE
     Dosage: 45 MILLIGRAM, QD (DAY 4)
     Route: 064
  34. MORPHINE [Suspect]
     Active Substance: MORPHINE
     Dosage: 75 MILLIGRAM, QD (DAY 6)
     Route: 064
  35. VINCRISTINE [Suspect]
     Active Substance: VINCRISTINE
     Indication: CHEMOTHERAPY
     Dosage: UNK
     Route: 064
  36. BUPRENORPHINE/NALOXONE 2 MG FILM [Suspect]
     Active Substance: BUPRENORPHINE\NALOXONE
     Indication: CANCER PAIN
     Dosage: 0.5 MILLIGRAM, QD (DAY 10)
     Route: 064
  37. BUPRENORPHINE/NALOXONE 2 MG FILM [Suspect]
     Active Substance: BUPRENORPHINE\NALOXONE
     Dosage: 1.5 MILLIGRAM, QD (DAY 13)
     Route: 064
  38. OXYCODONE [Suspect]
     Active Substance: OXYCODONE
     Dosage: 50 MILLIGRAM, PRN  (DAY 6)
     Route: 064
  39. OXYCODONE [Suspect]
     Active Substance: OXYCODONE
     Dosage: 60 MILLIGRAM, PRN (DAY 7)
     Route: 064
  40. MORPHINE INJECTION [Suspect]
     Active Substance: MORPHINE
     Indication: CANCER PAIN
     Dosage: 11.67 MILLIGRAM, QD (DAY 8)
     Route: 064
  41. MORPHINE INJECTION [Suspect]
     Active Substance: MORPHINE
     Dosage: 30.25 MILLIGRAM, QD  (DAY 10)
     Route: 064
  42. MORPHINE [Suspect]
     Active Substance: MORPHINE
     Dosage: 112.5 MILLIGRAM, QD (DAY 14)
     Route: 064
  43. OXYCODONE [Suspect]
     Active Substance: OXYCODONE
     Dosage: 30 MILLIGRAM, PRN (DAY 4)
     Route: 064
  44. CYCLOPHOSPHAMIDE. [Suspect]
     Active Substance: CYCLOPHOSPHAMIDE
     Indication: CHEMOTHERAPY
     Dosage: UNK
     Route: 064
  45. DEXAMETHASONE. [Suspect]
     Active Substance: DEXAMETHASONE
     Indication: PRODUCT USED FOR UNKNOWN INDICATION
     Dosage: UNK
     Route: 064

REACTIONS (4)
  - Foetal exposure during pregnancy [Recovered/Resolved]
  - Neonatal respiratory distress syndrome [Recovered/Resolved]
  - Premature baby [Recovered/Resolved]
  - Low birth weight baby [Unknown]
